FAERS Safety Report 13944188 (Version 2)
Quarter: 2017Q3

REPORT INFORMATION
  Report Type: Report from Study
  Country: None (occurrence: TR)
  Receive Date: 20170907
  Receipt Date: 20170921
  Transmission Date: 20171128
  Serious: Yes (Hospitalization)
  Sender: FDA-Public Use
  Company Number: TR-ABBVIE-17K-161-2094008-00

PATIENT
  Age: 54 Year
  Sex: Female
  Weight: 55 kg

DRUGS (7)
  1. LIORESAL [Concomitant]
     Active Substance: BACLOFEN
     Indication: EPILEPSY
     Dates: start: 2016
  2. MOTILIUM [Concomitant]
     Active Substance: DOMPERIDONE
     Indication: PARKINSON^S DISEASE
     Route: 050
     Dates: start: 2010
  3. MIRAPEX [Concomitant]
     Active Substance: PRAMIPEXOLE DIHYDROCHLORIDE
     Indication: PARKINSONISM
     Route: 050
     Dates: start: 2009
  4. ATARAX [Concomitant]
     Active Substance: HYDROXYZINE HYDROCHLORIDE
     Indication: PARKINSON^S DISEASE
     Route: 050
     Dates: start: 2015
  5. IMPACT GLUTAMIN [Concomitant]
     Indication: NUTRITIONAL SUPPLEMENTATION
     Route: 050
     Dates: start: 2014
  6. DUODOPA [Suspect]
     Active Substance: CARBIDOPA\LEVODOPA
     Indication: PARKINSON^S DISEASE
     Dosage: MORNING DOSE(ML): 14.00??CONTINOUS DOSE(ML): 4.50??EXTRA DOSE(ML): 2.00
     Route: 050
     Dates: start: 20170529
  7. CIPRALEX [Concomitant]
     Active Substance: ESCITALOPRAM OXALATE
     Indication: PARKINSON^S DISEASE
     Route: 050
     Dates: start: 2010

REACTIONS (1)
  - Epilepsy [Recovered/Resolved]

NARRATIVE: CASE EVENT DATE: 20170904
